FAERS Safety Report 10897983 (Version 1)
Quarter: 2015Q1

REPORT INFORMATION
  Report Type: Spontaneous
  Country: US (occurrence: US)
  Receive Date: 20150309
  Receipt Date: 20150309
  Transmission Date: 20150721
  Serious: Yes (Death, Other)
  Sender: FDA-Public Use
  Company Number: PHHY2015US025613

PATIENT
  Age: 65 Year
  Sex: Male

DRUGS (2)
  1. CEFEPIME [Concomitant]
     Active Substance: CEFEPIME\CEFEPIME HYDROCHLORIDE
     Indication: KLEBSIELLA BACTERAEMIA
     Route: 065
  2. GENTAMICIN. [Suspect]
     Active Substance: GENTAMICIN
     Indication: KLEBSIELLA BACTERAEMIA
     Route: 065

REACTIONS (2)
  - Klebsiella bacteraemia [Fatal]
  - Renal failure [Unknown]
